FAERS Safety Report 9619674 (Version 1)
Quarter: 2013Q4

REPORT INFORMATION
  Report Type: Spontaneous
  Country: US (occurrence: US)
  Receive Date: 20131014
  Receipt Date: 20131014
  Transmission Date: 20140711
  Serious: Yes (Other)
  Sender: FDA-Public Use
  Company Number: US-ELI_LILLY_AND_COMPANY-US201310001261

PATIENT
  Sex: Female

DRUGS (2)
  1. HUMALOG LISPRO [Suspect]
     Indication: TYPE 2 DIABETES MELLITUS
     Dosage: UNK
     Dates: start: 2003
  2. HUMALOG LISPRO [Suspect]
     Dosage: 54 U, PRN

REACTIONS (4)
  - Arterial disorder [Unknown]
  - Glaucoma [Unknown]
  - Blood glucose increased [Unknown]
  - Memory impairment [Unknown]
